FAERS Safety Report 9753753 (Version 1)
Quarter: 2013Q4

REPORT INFORMATION
  Report Type: Spontaneous
  Country: AU (occurrence: AU)
  Receive Date: 20131213
  Receipt Date: 20131213
  Transmission Date: 20140711
  Serious: Yes (Hospitalization)
  Sender: FDA-Public Use
  Company Number: AU-BAYER-2013-150050

PATIENT
  Age: 49 Year
  Sex: Male

DRUGS (5)
  1. ULTRAVIST 370 [Suspect]
     Indication: ANGIOGRAM
     Dosage: 130ML
  2. ULTRAVIST 370 [Suspect]
     Indication: CHEST PAIN
     Dosage: 75ML
  3. ULTRAVIST 370 [Suspect]
     Indication: DYSPNOEA EXERTIONAL
  4. ULTRAVIST 370 [Suspect]
     Indication: COMPUTERISED TOMOGRAM ABDOMEN
  5. ULTRAVIST 370 [Suspect]
     Indication: PROCEDURAL HYPOTENSION

REACTIONS (1)
  - Contrast encephalopathy [Recovered/Resolved]
